FAERS Safety Report 9896536 (Version 1)
Quarter: 2014Q1

REPORT INFORMATION
  Report Type: Spontaneous
  Country: US (occurrence: US)
  Receive Date: 20140213
  Receipt Date: 20140213
  Transmission Date: 20141002
  Serious: No
  Sender: FDA-Public Use
  Company Number: US-BRISTOL-MYERS SQUIBB COMPANY-18857813

PATIENT
  Age: 63 Year
  Sex: Female

DRUGS (11)
  1. ABATACEPT SUBQ INJECTION 125MG/ML [Suspect]
     Dosage: 1 DF: 125MG/ML
     Route: 058
  2. ATENOLOL [Concomitant]
  3. CYMBALTA [Concomitant]
  4. LASIX [Concomitant]
  5. LIDODERM [Concomitant]
  6. MOBIC [Concomitant]
  7. POTASSIUM [Concomitant]
  8. PRAMIPEXOLE HCL [Concomitant]
  9. PRILOSEC [Concomitant]
  10. SYNTHROID [Concomitant]
  11. TRAMADOL [Concomitant]

REACTIONS (1)
  - Alopecia [Not Recovered/Not Resolved]
